FAERS Safety Report 8305427-3 (Version None)
Quarter: 2012Q2

REPORT INFORMATION
  Report Type: 
  Country: None (occurrence: None)
  Receive Date: 20120423
  Receipt Date: 20120417
  Transmission Date: 20120825
  Serious: Yes (Other)
  Sender: FDA-Public Use
  Company Number: PHHY2012SI031352

PATIENT
  Age: 87 Year
  Sex: Female

DRUGS (3)
  1. VERAPAMIL [Suspect]
     Indication: HYPERTENSION
     Dosage: 80 MG, QD
  2. TRANDOLAPRIL [Concomitant]
  3. IRBESARTAN [Concomitant]

REACTIONS (3)
  - EXTRASYSTOLES [None]
  - BRADYCARDIA [None]
  - BLOOD PRESSURE INCREASED [None]
